FAERS Safety Report 11589364 (Version 1)
Quarter: 2015Q4

REPORT INFORMATION
  Report Type: Spontaneous
  Country: FI (occurrence: FI)
  Receive Date: 20151002
  Receipt Date: 20151002
  Transmission Date: 20160304
  Serious: Yes (Other)
  Sender: FDA-Public Use
  Company Number: FI-ASTRAZENECA-2015SE93673

PATIENT
  Age: 44 Year
  Sex: Female

DRUGS (8)
  1. BYDUREON [Concomitant]
     Active Substance: EXENATIDE
  2. LATUS [Concomitant]
  3. ROSUVASTATIN [Concomitant]
     Active Substance: ROSUVASTATIN
  4. THYROXIN [Concomitant]
     Active Substance: LEVOTHYROXINE
  5. METFOREM [Concomitant]
     Active Substance: METFORMIN HYDROCHLORIDE
  6. COZAAR [Concomitant]
     Active Substance: LOSARTAN POTASSIUM
  7. FORXIGA [Suspect]
     Active Substance: DAPAGLIFLOZIN
     Indication: TYPE 2 DIABETES MELLITUS
     Route: 048
     Dates: start: 20131120
  8. ASPIRIN. [Concomitant]
     Active Substance: ASPIRIN

REACTIONS (1)
  - Urine ketone body [Not Recovered/Not Resolved]

NARRATIVE: CASE EVENT DATE: 20131122
